FAERS Safety Report 23387388 (Version 1)
Quarter: 2024Q1

REPORT INFORMATION
  Report Type: Report from Study
  Country: AT (occurrence: AT)
  Receive Date: 20240110
  Receipt Date: 20240110
  Transmission Date: 20240410
  Serious: Yes (Other)
  Sender: FDA-Public Use
  Company Number: AT-ABBVIE-5574647

PATIENT
  Sex: Female

DRUGS (4)
  1. HUMIRA [Suspect]
     Active Substance: ADALIMUMAB
     Indication: Product used for unknown indication
     Route: 058
     Dates: start: 2008, end: 2012
  2. BISOPROLOL FUMARATE [Concomitant]
     Active Substance: BISOPROLOL FUMARATE
     Indication: Cardiac disorder
     Dates: start: 2012
  3. SKYRIZI [Suspect]
     Active Substance: RISANKIZUMAB-RZAA
     Indication: Crohn^s disease
     Route: 042
     Dates: start: 202309, end: 202312
  4. ASPIRIN [Concomitant]
     Active Substance: ASPIRIN
     Indication: Cardiac disorder
     Dates: start: 2012

REACTIONS (8)
  - Myocardial infarction [Recovered/Resolved]
  - Rhinitis [Recovering/Resolving]
  - Multiple organ dysfunction syndrome [Recovered/Resolved]
  - Liver function test increased [Recovered/Resolved]
  - Coronavirus infection [Recovering/Resolving]
  - Cholelithiasis [Recovered/Resolved]
  - Pancreatitis [Recovering/Resolving]
  - Hepatic failure [Recovered/Resolved]

NARRATIVE: CASE EVENT DATE: 20120101
